FAERS Safety Report 8791613 (Version 1)
Quarter: 2012Q4

REPORT INFORMATION
  Report Type: 
  Country: US (occurrence: US)
  Receive Date: 20120918
  Receipt Date: 20120918
  Transmission Date: 20130627
  Serious: No
  Sender: FDA-Public Use
  Company Number: US-ASTRAZENECA-2012SE70239

PATIENT
  Age: 63 Year
  Sex: Male
  Weight: 84.4 kg

DRUGS (1)
  1. NEXIUM [Suspect]
     Indication: ABDOMINAL PAIN UPPER
     Route: 048
     Dates: start: 201208

REACTIONS (4)
  - Flatulence [Unknown]
  - Abdominal distension [Unknown]
  - Abdominal distension [Unknown]
  - Off label use [Unknown]
